FAERS Safety Report 5636082-9 (Version None)
Quarter: 2008Q1

REPORT INFORMATION
  Report Type: 
  Country: None (occurrence: None)
  Receive Date: 20080220
  Receipt Date: 20080220
  Transmission Date: 20080703
  Serious: Yes (Life-Threatening)
  Sender: FDA-Public Use
  Company Number: None

PATIENT
  Age: 44 Year
  Sex: Male
  Weight: 75 kg

DRUGS (2)
  1. ANGIOMAX [Suspect]
     Indication: CATHETERISATION CARDIAC
     Dosage: 55MG BOLUS IV BOLUS
     Route: 040
     Dates: start: 20080214, end: 20080214
  2. ANGIOMAX [Suspect]
     Indication: CATHETERISATION CARDIAC
     Dosage: 130MG/HR DRIP IV DRIP
     Route: 041
     Dates: start: 20080214, end: 20080214

REACTIONS (2)
  - CHEST PAIN [None]
  - THROMBOSIS [None]
